FAERS Safety Report 14644192 (Version 3)
Quarter: 2018Q1

REPORT INFORMATION
  Report Type: Spontaneous
  Country: FR (occurrence: FR)
  Receive Date: 20180315
  Receipt Date: 20180328
  Transmission Date: 20180509
  Serious: Yes (Hospitalization, Other)
  Sender: FDA-Public Use
  Company Number: FR-009507513-1803FRA004037

PATIENT
  Age: 34 Year
  Sex: Female

DRUGS (4)
  1. NEXPLANON [Suspect]
     Active Substance: ETONOGESTREL
     Indication: CONTRACEPTION
     Dosage: 68 MG IMPLANT, UNK
     Route: 059
     Dates: start: 201402
  2. NEXPLANON [Suspect]
     Active Substance: ETONOGESTREL
     Dosage: 68 MG IMPLANT, UNK
     Route: 059
     Dates: start: 201609
  3. IMPLANON [Suspect]
     Active Substance: ETONOGESTREL
     Indication: CONTRACEPTION
     Dosage: 68 MG IMPLANT, UNK
     Route: 059
     Dates: start: 200803
  4. IMPLANON [Suspect]
     Active Substance: ETONOGESTREL
     Dosage: 68 MG IMPLANT, UNK
     Route: 059
     Dates: start: 201102

REACTIONS (4)
  - Adnexal torsion [Not Recovered/Not Resolved]
  - Adnexa uteri pain [Unknown]
  - Drug ineffective [Unknown]
  - Ovulation disorder [Unknown]

NARRATIVE: CASE EVENT DATE: 2008
